FAERS Safety Report 14531201 (Version 3)
Quarter: 2019Q2

REPORT INFORMATION
  Report Type: Spontaneous
  Country: NZ (occurrence: NZ)
  Receive Date: 20180214
  Receipt Date: 20190502
  Transmission Date: 20190711
  Serious: Yes (Other)
  Sender: FDA-Public Use
  Company Number: NZ-MYLANLABS-2017M1074653

PATIENT
  Age: 55 Year
  Sex: Female
  Weight: 85.5 kg

DRUGS (9)
  1. CLOZARIL [Suspect]
     Active Substance: CLOZAPINE
     Indication: SCHIZOAFFECTIVE DISORDER
     Dosage: 50 MILLIGRAM, PM
     Route: 048
     Dates: start: 2004
  2. LAXSOL [Concomitant]
     Active Substance: DOCUSATE SODIUM\SENNOSIDES A AND B
     Indication: CONSTIPATION
     Dosage: UNK, AM
     Route: 048
  3. CLOZARIL [Suspect]
     Active Substance: CLOZAPINE
     Indication: SCHIZOPHRENIA
     Dosage: 75 MILLIGRAM
     Route: 048
     Dates: start: 20040414
  4. SODIUM VALPROATE [Concomitant]
     Active Substance: VALPROATE SODIUM
     Indication: SCHIZOAFFECTIVE DISORDER
     Dosage: 1 GRAM, PM
     Route: 048
     Dates: start: 2005
  5. FOLIC ACID. [Concomitant]
     Active Substance: FOLIC ACID
     Indication: PRODUCT USED FOR UNKNOWN INDICATION
     Dosage: 10 MILLIGRAM, AM
     Route: 048
  6. FLUTICASONE PROPIONATE. [Concomitant]
     Active Substance: FLUTICASONE PROPIONATE
     Indication: SEASONAL ALLERGY
     Dosage: UNK, PRN
     Route: 045
     Dates: start: 201712
  7. LACTULOSE. [Concomitant]
     Active Substance: LACTULOSE
     Indication: CONSTIPATION
     Dosage: UNK, PRN
     Route: 048
  8. KONSYL-D                           /00029101/ [Concomitant]
     Indication: CONSTIPATION
     Dosage: UNK, PRN
     Route: 048
  9. LAX SACHETS [Concomitant]
     Indication: CONSTIPATION
     Dosage: UNK, PRN
     Route: 048

REACTIONS (15)
  - Metastases to lung [Unknown]
  - Hypoacusis [Unknown]
  - Refusal of treatment by patient [Unknown]
  - Type 2 diabetes mellitus [Unknown]
  - Lymphopenia [Unknown]
  - Otorrhoea [Unknown]
  - Immunodeficiency [Recovering/Resolving]
  - Malignant anorectal neoplasm [Unknown]
  - Metastases to lymph nodes [Unknown]
  - Neutropenia [Recovered/Resolved]
  - Leukopenia [Not Recovered/Not Resolved]
  - Faecaloma [Unknown]
  - Tympanic membrane perforation [Unknown]
  - Hyperlipidaemia [Unknown]
  - Haemoglobin decreased [Unknown]

NARRATIVE: CASE EVENT DATE: 2005
